FAERS Safety Report 5862711-0 (Version None)
Quarter: 2008Q3

REPORT INFORMATION
  Report Type: 
  Country: None (occurrence: None)
  Receive Date: 20080828
  Receipt Date: 20080819
  Transmission Date: 20090109
  Serious: Yes (Hospitalization, Other)
  Sender: FDA-Public Use
  Company Number: US-JNJFOC-20080407219

PATIENT
  Sex: Female
  Weight: 63.96 kg

DRUGS (14)
  1. INVEGA [Suspect]
     Indication: PSYCHOTIC DISORDER
     Route: 048
  2. INVEGA [Suspect]
     Indication: HALLUCINATION
     Route: 048
  3. INVEGA [Suspect]
     Indication: BORDERLINE PERSONALITY DISORDER
     Route: 048
  4. PROPRANOLOL [Concomitant]
     Indication: MIGRAINE PROPHYLAXIS
  5. PROZAC [Concomitant]
     Route: 048
  6. PROZAC [Concomitant]
     Indication: MAJOR DEPRESSION
     Route: 048
  7. MAXALT [Concomitant]
     Indication: MIGRAINE
     Route: 048
  8. DILANTIN [Concomitant]
     Route: 048
  9. TRAZODONE HCL [Concomitant]
     Route: 048
  10. NALTREXONE HYDROCHLORIDE [Concomitant]
     Route: 048
  11. ZOCOR [Concomitant]
     Route: 048
  12. FISH OIL [Concomitant]
     Route: 048
  13. NEURONTIN [Concomitant]
     Indication: MULTIPLE SCLEROSIS
     Dosage: ^300/300/600 MG^
  14. COMBIVENT [Concomitant]
     Indication: CHRONIC OBSTRUCTIVE PULMONARY DISEASE
     Dosage: 2 PUFFS 4 TIMES DAILY
     Route: 055

REACTIONS (2)
  - GALACTORRHOEA [None]
  - HYPERPROLACTINAEMIA [None]
